FAERS Safety Report 17939273 (Version 1)
Quarter: 2020Q2

REPORT INFORMATION
  Report Type: Spontaneous
  Country: US (occurrence: US)
  Receive Date: 20200624
  Receipt Date: 20200624
  Transmission Date: 20200714
  Serious: No
  Sender: FDA-Public Use
  Company Number: US-SHIRE-US202020562

PATIENT
  Sex: Male

DRUGS (1)
  1. VYVANSE [Suspect]
     Active Substance: LISDEXAMFETAMINE DIMESYLATE
     Indication: ATTENTION DEFICIT HYPERACTIVITY DISORDER
     Dosage: 20 MILLIGRAM, UNKNOWN
     Route: 065

REACTIONS (5)
  - Pain [Unknown]
  - Mastication disorder [Unknown]
  - Inappropriate schedule of product administration [Unknown]
  - Neuralgia [Unknown]
  - Gait inability [Unknown]
